FAERS Safety Report 9167648 (Version 2)
Quarter: 2013Q2

REPORT INFORMATION
  Report Type: Spontaneous
  Country: AU (occurrence: AU)
  Receive Date: 20130318
  Receipt Date: 20130415
  Transmission Date: 20140414
  Serious: Yes (Other)
  Sender: FDA-Public Use
  Company Number: PHHY2013AU022948

PATIENT
  Age: 30 Year
  Sex: Female
  Weight: 78 kg

DRUGS (2)
  1. GILENYA [Suspect]
     Indication: MULTIPLE SCLEROSIS
     Dosage: 0.5 MG, QD
     Route: 048
     Dates: start: 20101130
  2. VITAMIN D [Concomitant]
     Dosage: 2000 IU, UNK
     Route: 048

REACTIONS (3)
  - Anorectal human papilloma virus infection [Recovered/Resolved]
  - Uhthoff^s phenomenon [Unknown]
  - Infection [Unknown]
